FAERS Safety Report 9231095 (Version 1)
Quarter: 2013Q2

REPORT INFORMATION
  Report Type: Spontaneous
  Country: IN (occurrence: IN)
  Receive Date: 20130415
  Receipt Date: 20130415
  Transmission Date: 20140414
  Serious: Yes (Hospitalization)
  Sender: FDA-Public Use
  Company Number: PHHY2013IN033969

PATIENT
  Age: 30 Year
  Sex: Female

DRUGS (1)
  1. DIGOXIN [Suspect]
     Dosage: 17.5 MG, (70 TABLETS OF 0.25 MG)

REACTIONS (13)
  - Suicidal ideation [Unknown]
  - Toxicity to various agents [Recovering/Resolving]
  - Haemodynamic instability [Unknown]
  - Electrocardiogram PR prolongation [Unknown]
  - Atrioventricular block [Recovered/Resolved]
  - Supraventricular extrasystoles [Unknown]
  - Bradycardia [Recovering/Resolving]
  - Hypotension [Unknown]
  - Diplopia [Recovering/Resolving]
  - Vision blurred [Recovering/Resolving]
  - Xanthopsia [Recovering/Resolving]
  - Nausea [Recovering/Resolving]
  - Vomiting [Recovering/Resolving]
